FAERS Safety Report 7991017-9 (Version None)
Quarter: 2011Q4

REPORT INFORMATION
  Report Type: 
  Country: None (occurrence: None)
  Receive Date: 20111219
  Receipt Date: 20111205
  Transmission Date: 20120403
  Serious: Yes (Other)
  Sender: FDA-Public Use
  Company Number: JP-UCBSA-047429

PATIENT
  Sex: Female

DRUGS (1)
  1. XYZAL [Suspect]
     Route: 048
     Dates: start: 20110916, end: 20111028

REACTIONS (1)
  - PLATELET COUNT DECREASED [None]
